FAERS Safety Report 8053358-9 (Version None)
Quarter: 2012Q1

REPORT INFORMATION
  Report Type: 
  Country: None (occurrence: None)
  Receive Date: 20120118
  Receipt Date: 20120113
  Transmission Date: 20120608
  Serious: Yes (Other)
  Sender: FDA-Public Use
  Company Number: US-JNJFOC-2006096325

PATIENT
  Age: 61 Year
  Sex: Male

DRUGS (2)
  1. SUDAFED 24 HOUR [Suspect]
     Route: 048
  2. SUDAFED 24 HOUR [Suspect]
     Indication: PRODUCT USED FOR UNKNOWN INDICATION
     Dosage: DAILY DOSE TEXT: 2 TABS THEN 2 MORE TABS 3 HRS LATER
     Route: 048

REACTIONS (3)
  - NO ADVERSE EVENT [None]
  - INCORRECT DRUG ADMINISTRATION DURATION [None]
  - ACCIDENTAL OVERDOSE [None]
